FAERS Safety Report 8373823-4 (Version None)
Quarter: 2012Q2

REPORT INFORMATION
  Report Type: 
  Country: None (occurrence: None)
  Receive Date: 20120521
  Receipt Date: 20120509
  Transmission Date: 20120825
  Serious: Yes (Hospitalization)
  Sender: FDA-Public Use
  Company Number: AU-ACTELION-A-CH2012-64832

PATIENT
  Sex: Female

DRUGS (10)
  1. TRACLEER [Suspect]
     Dosage: 125 MG, BID
     Route: 048
     Dates: start: 20081118
  2. TRACLEER [Suspect]
     Dosage: 62.5 MG, BID
     Route: 048
  3. TRACLEER [Suspect]
     Indication: PULMONARY ARTERIAL HYPERTENSION
     Dosage: 125 MG, BID
     Route: 048
     Dates: start: 20090107
  4. TRACLEER [Suspect]
     Dosage: 250 MG, BID
     Route: 048
     Dates: end: 20090106
  5. BICOR [Concomitant]
     Dosage: 62.5 MG, BID
     Route: 048
     Dates: start: 20080101
  6. LIPITOR [Concomitant]
  7. COMBIVIR [Concomitant]
  8. RALTEGRAVIR [Concomitant]
  9. TRACLEER [Suspect]
     Dosage: 62.5 MG, BID
     Route: 048
     Dates: start: 20071220, end: 20081117
  10. ASPIRIN [Concomitant]

REACTIONS (4)
  - WEIGHT DECREASED [None]
  - GASTROINTESTINAL TUBE INSERTION [None]
  - DECREASED APPETITE [None]
  - DYSPHAGIA [None]
